FAERS Safety Report 20641735 (Version 1)
Quarter: 2022Q1

REPORT INFORMATION
  Report Type: Spontaneous
  Country: US (occurrence: US)
  Receive Date: 20220328
  Receipt Date: 20220328
  Transmission Date: 20220423
  Serious: No
  Sender: FDA-Public Use
  Company Number: US-TEVA-2022-US-2018340

PATIENT

DRUGS (4)
  1. LEUCOVORIN [Suspect]
     Active Substance: LEUCOVORIN
     Indication: Systemic lupus erythematosus
     Route: 065
  2. METHOTREXATE [Suspect]
     Active Substance: METHOTREXATE
     Indication: Systemic lupus erythematosus
     Route: 065
  3. MEDROL [Suspect]
     Active Substance: METHYLPREDNISOLONE
     Indication: Systemic lupus erythematosus
     Route: 065
  4. PLAQUENIL [Suspect]
     Active Substance: HYDROXYCHLOROQUINE SULFATE
     Indication: Systemic lupus erythematosus
     Route: 065

REACTIONS (3)
  - Asthma [Unknown]
  - Cardiac disorder [Unknown]
  - Drug intolerance [Unknown]
